FAERS Safety Report 7427694-0 (Version None)
Quarter: 2011Q2

REPORT INFORMATION
  Report Type: 
  Country: None (occurrence: None)
  Receive Date: 20110421
  Receipt Date: 20110413
  Transmission Date: 20111010
  Serious: Yes (Hospitalization, Other)
  Sender: FDA-Public Use
  Company Number: US-ASTRAZENECA-2009UW20455

PATIENT
  Age: 523 Month
  Sex: Male
  Weight: 90.7 kg

DRUGS (21)
  1. GEODON [Concomitant]
  2. AMBIEN [Concomitant]
     Dates: start: 20010202
  3. PROZAC [Concomitant]
     Indication: ANXIETY
     Dosage: 20-40 MG 3XD
     Dates: start: 20010101
  4. SEROQUEL [Suspect]
     Indication: DEPRESSION
     Route: 048
     Dates: start: 20010329
  5. XANAX [Concomitant]
     Indication: DEPRESSION
     Dosage: 2 MG 3XD
     Dates: start: 20040101
  6. RAMPERIL [Concomitant]
     Indication: HYPERLIPIDAEMIA
     Dosage: 2.5MG 1XD
     Dates: start: 20010101
  7. VIOXX [Concomitant]
     Dates: start: 20010217
  8. SEROQUEL [Suspect]
     Dosage: 200MG 1XD AND 50MG 2XD
     Route: 048
     Dates: start: 20040201, end: 20050501
  9. SIMVASTATIN [Concomitant]
     Indication: HYPERLIPIDAEMIA
     Dosage: 80 MG 1XD
     Dates: start: 20010101
  10. PROZAC [Concomitant]
     Indication: DEPRESSION
     Dosage: 20-40 MG 3XD
     Dates: start: 20010101
  11. SIMVASTATIN [Concomitant]
     Indication: BLOOD CHOLESTEROL INCREASED
     Dosage: 80 MG 1XD
     Dates: start: 20010101
  12. CLONIDINE HCL [Concomitant]
     Dates: start: 20010217
  13. BELLADONNA/PHENOBARB [Concomitant]
     Dates: start: 20010601
  14. RAMPERIL [Concomitant]
     Indication: BLOOD CHOLESTEROL INCREASED
     Dosage: 2.5MG 1XD
     Dates: start: 20010101
  15. HYDROCODONE BITARTRATE AND ACETAMINOPHEN [Concomitant]
     Dosage: 7.5/500-10/650
     Dates: start: 20010215
  16. CLONAZEPAM [Concomitant]
     Dates: start: 20010116
  17. DOXAZOSIN MESYLATE [Concomitant]
     Dates: start: 20010202
  18. HYDROCHLOROTHIAZIDE [Concomitant]
     Dates: start: 20010605
  19. PROZAC [Concomitant]
     Dosage: 20-40 MG
     Dates: start: 20010202
  20. PROZAC [Concomitant]
     Dosage: 20-40 MG
     Dates: start: 20010202
  21. HALICON [Concomitant]

REACTIONS (10)
  - ANGINA PECTORIS [None]
  - DIABETIC KETOACIDOSIS [None]
  - ANGINA UNSTABLE [None]
  - MYOCARDIAL INFARCTION [None]
  - CARDIAC FAILURE CONGESTIVE [None]
  - VISUAL ACUITY REDUCED [None]
  - BLOOD GLUCOSE INCREASED [None]
  - HYPERGLYCAEMIA [None]
  - CORONARY ARTERY DISEASE [None]
  - TYPE 2 DIABETES MELLITUS [None]
